FAERS Safety Report 5153081-4 (Version None)
Quarter: 2006Q4

REPORT INFORMATION
  Report Type: 
  Country: None (occurrence: None)
  Receive Date: 20061117
  Receipt Date: 20061106
  Transmission Date: 20070319
  Serious: Yes (Hospitalization)
  Sender: FDA-Public Use
  Company Number: PHRM2006FR02991

PATIENT
  Age: 70 Year
  Sex: Male

DRUGS (6)
  1. VOLTAREN [Suspect]
     Dosage: 100 MG, ONCE/SINGLE
     Route: 048
     Dates: start: 20061001
  2. NEXEN [Suspect]
     Route: 048
     Dates: start: 20061001
  3. DITROPAN [Concomitant]
  4. HEXAQUINE [Concomitant]
     Indication: MUSCLE SPASMS
  5. OGAST [Concomitant]
  6. BETASERC [Concomitant]

REACTIONS (7)
  - CARDIAC DISCOMFORT [None]
  - DRUG INEFFECTIVE [None]
  - HEADACHE [None]
  - HYPERTENSION [None]
  - TACHYCARDIA [None]
  - VISCERAL PAIN [None]
  - VOMITING [None]
